FAERS Safety Report 11045220 (Version 2)
Quarter: 2015Q2

REPORT INFORMATION
  Report Type: Report from Study
  Country: KR (occurrence: KR)
  Receive Date: 20150417
  Receipt Date: 20150424
  Transmission Date: 20150821
  Serious: Yes (Hospitalization, Other)
  Sender: FDA-Public Use
  Company Number: PHHO2015KR006187

PATIENT
  Age: 61 Year
  Sex: Female
  Weight: 57 kg

DRUGS (8)
  1. NEXIUM I.V. [Concomitant]
     Active Substance: ESOMEPRAZOLE SODIUM
     Indication: DYSPEPSIA
     Dosage: 10 MG, QD
     Route: 048
     Dates: start: 20141016
  2. PANCRON//PANCREATIN [Concomitant]
     Indication: DYSPEPSIA
     Dosage: 1 DF, TID
     Route: 065
     Dates: start: 20141016
  3. MEGACE ORAL SUSPENSION [Concomitant]
     Indication: DYSPEPSIA
     Dosage: 10 ML, QD
     Route: 048
     Dates: start: 20140923
  4. LDK378 [Suspect]
     Active Substance: CERITINIB
     Indication: NON-SMALL CELL LUNG CANCER
     Dosage: 750 MG, QD
     Route: 048
     Dates: start: 20140930, end: 20150409
  5. GANATONE [Concomitant]
     Indication: DYSPEPSIA
     Dosage: 50 MG, TID
     Route: 065
     Dates: start: 20141211
  6. BECOM                              /00322001/ [Concomitant]
     Indication: STOMATITIS
     Dosage: 1 DF, BID
     Route: 065
     Dates: start: 20141112
  7. TARGIN [Concomitant]
     Active Substance: NALOXONE HYDROCHLORIDE\OXYCODONE HYDROCHLORIDE
     Indication: BACK PAIN
     Dosage: 10 MG, BID
     Route: 065
     Dates: start: 20141112
  8. HUMULIN N [Concomitant]
     Active Substance: INSULIN HUMAN
     Indication: PRODUCT USED FOR UNKNOWN INDICATION
     Dosage: 48 IU (36 + 12 IU), QD
     Route: 065
     Dates: start: 20150226

REACTIONS (1)
  - Atypical pneumonia [Recovered/Resolved]

NARRATIVE: CASE EVENT DATE: 20150404
